FAERS Safety Report 9868893 (Version 1)
Quarter: 2014Q1

REPORT INFORMATION
  Report Type: Report from Study
  Country: DE (occurrence: DE)
  Receive Date: 20140204
  Receipt Date: 20140204
  Transmission Date: 20141002
  Serious: Yes (Other)
  Sender: FDA-Public Use
  Company Number: DE-UCBSA-111569

PATIENT
  Sex: Female
  Weight: 67.8 kg

DRUGS (9)
  1. LEGANTO [Suspect]
     Indication: RESTLESS LEGS SYNDROME
     Route: 062
  2. SALBUTAMOL [Concomitant]
     Indication: ASTHMA
     Dosage: UNKNOWN MG
  3. SALBUTAMOL [Concomitant]
     Indication: CHRONIC OBSTRUCTIVE PULMONARY DISEASE
     Dosage: UNKNOWN MG
  4. VOLTAREN [Concomitant]
     Indication: MYALGIA
     Dosage: ONCE DAILY
  5. LIMPTAR N [Concomitant]
     Indication: RESTLESS LEGS SYNDROME
     Route: 048
  6. CAPTOPRIL-HCT [Concomitant]
     Indication: HYPERTENSION
     Dosage: DOSE PER INTAKE: 50/25 MG, ONCE DAILY
     Route: 048
  7. SPIRIVA [Concomitant]
     Indication: CHRONIC OBSTRUCTIVE PULMONARY DISEASE
     Route: 055
  8. FORMOTEROL [Concomitant]
     Indication: ASTHMA
     Route: 055
  9. DULCOLAX [Concomitant]
     Indication: CONSTIPATION
     Route: 048

REACTIONS (2)
  - Pulmonary fibrosis [Not Recovered/Not Resolved]
  - Cardiac failure [Unknown]
